FAERS Safety Report 5106111-X (Version None)
Quarter: 2006Q3

REPORT INFORMATION
  Report Type: 
  Country: None (occurrence: None)
  Receive Date: 20060912
  Receipt Date: 20060824
  Transmission Date: 20061208
  Serious: Yes (Hospitalization)
  Sender: FDA-Public Use
  Company Number: 06091838

PATIENT
  Age: 20 Year
  Sex: Female

DRUGS (3)
  1. WARFARIN SODIUM [Suspect]
     Indication: EMBOLISM
  2. COLCHICUM-DISPERT (COLCHICINE) [Concomitant]
  3. ASPIRIN [Concomitant]

REACTIONS (6)
  - ANOREXIA [None]
  - BACK PAIN [None]
  - DIARRHOEA [None]
  - DRUG INEFFECTIVE [None]
  - PYREXIA [None]
  - VOMITING [None]
